FAERS Safety Report 22634336 (Version 1)
Quarter: 2023Q2

REPORT INFORMATION
  Report Type: Spontaneous
  Country: US (occurrence: US)
  Receive Date: 20230623
  Receipt Date: 20230623
  Transmission Date: 20230722
  Serious: Yes (Hospitalization)
  Sender: FDA-Public Use
  Company Number: US-PFIZER INC-202300226164

PATIENT
  Age: 12 Year
  Sex: Male

DRUGS (5)
  1. OXBRYTA [Suspect]
     Active Substance: VOXELOTOR
     Indication: Sickle cell disease
     Dosage: 1500 MG, 1X/DAY
     Route: 048
  2. OXBRYTA [Suspect]
     Active Substance: VOXELOTOR
     Dosage: 1500 MG, 1X/DAY
     Route: 048
     Dates: start: 202202
  3. FOLIC ACID [Suspect]
     Active Substance: FOLIC ACID
     Dosage: 1 MG, 1X/DAY
     Route: 048
  4. HYDROXYUREA [Suspect]
     Active Substance: HYDROXYUREA
     Dosage: UNK, 1X/DAY (1500(UNIT NOT CLARIFIED) DAILY)
     Route: 048
  5. VITAMIN D NOS [Suspect]
     Active Substance: VITAMIN D NOS
     Dosage: 50000 IU, WEEKLY

REACTIONS (1)
  - Sickle cell anaemia with crisis [Not Recovered/Not Resolved]

NARRATIVE: CASE EVENT DATE: 20220201
